FAERS Safety Report 7967103-6 (Version None)
Quarter: 2011Q4

REPORT INFORMATION
  Report Type: 
  Country: None (occurrence: None)
  Receive Date: 20111209
  Receipt Date: 20111206
  Transmission Date: 20120403
  Serious: Yes (Life-Threatening, Hospitalization)
  Sender: FDA-Public Use
  Company Number: JP-PFIZER INC-2011276135

PATIENT
  Age: 7 Year
  Sex: Male
  Weight: 27.5 kg

DRUGS (5)
  1. MUCODYNE [Concomitant]
     Indication: ASTHMA
     Dosage: 250 MG, 2X/DAY
     Route: 048
     Dates: start: 20111027
  2. SOLU-CORTEF [Suspect]
     Indication: ASTHMA
     Dosage: 200 MG, DAILY
     Route: 041
     Dates: start: 20111028, end: 20111028
  3. SODIUM CHLORIDE [Concomitant]
     Indication: MEDICATION DILUTION
     Dosage: 100 ML, 1X/DAY
     Route: 041
     Dates: start: 20111028, end: 20111028
  4. HOKUNALIN [Concomitant]
     Indication: ASTHMA
     Dosage: 1 MG, 1X/DAY
     Route: 062
     Dates: start: 20111027
  5. SINGULAIR [Concomitant]
     Indication: ASTHMA
     Dosage: 5 MG, 1X/DAY
     Route: 048
     Dates: start: 20100528

REACTIONS (1)
  - ANAPHYLACTIC REACTION [None]
